FAERS Safety Report 13787829 (Version 1)
Quarter: 2017Q3

REPORT INFORMATION
  Report Type: Spontaneous
  Country: IN (occurrence: IN)
  Receive Date: 20170725
  Receipt Date: 20170725
  Transmission Date: 20171127
  Serious: No
  Sender: FDA-Public Use
  Company Number: IN-LUPIN PHARMACEUTICALS INC.-E2B_00006753

PATIENT
  Age: 31 Year
  Sex: Male

DRUGS (3)
  1. ENTROFLORA [Concomitant]
     Indication: GASTROINTESTINAL DISORDER
     Dosage: UNK UNK,QD,
     Route: 048
     Dates: start: 20161023
  2. STELBID [Concomitant]
     Indication: GASTROINTESTINAL DISORDER
     Dosage: UNK UNK,BID,
     Route: 048
     Dates: start: 20161023
  3. PEGALUP ORAL SOLUT. 200 ML [Suspect]
     Active Substance: POLYETHYLENE GLYCOL 3350\POTASSIUM CHLORIDE\SODIUM BICARBONATE\SODIUM CHLORIDE
     Indication: GASTROINTESTINAL DISORDER
     Dosage: 25 ML SOLUTION IN 100 ML OF WATER
     Route: 048
     Dates: start: 20161123

REACTIONS (2)
  - Dysuria [Not Recovered/Not Resolved]
  - Product used for unknown indication [Unknown]

NARRATIVE: CASE EVENT DATE: 20161123
